FAERS Safety Report 6152303-0 (Version None)
Quarter: 2009Q2

REPORT INFORMATION
  Report Type: 
  Country: None (occurrence: None)
  Receive Date: 20090410
  Receipt Date: 20020206
  Transmission Date: 20091009
  Serious: Yes (Life-Threatening)
  Sender: FDA-Public Use
  Company Number: FR-MERCK-0202FRA00010

PATIENT
  Age: 26 Year
  Sex: Female
  Weight: 67 kg

DRUGS (10)
  1. PRIMAXIN [Suspect]
     Route: 042
     Dates: start: 20001028, end: 20001108
  2. PRIMAXIN [Suspect]
     Route: 042
     Dates: start: 20010812, end: 20011123
  3. EPOETIN ALFA [Suspect]
     Indication: ANAEMIA
     Route: 058
     Dates: start: 20001104, end: 20001108
  4. EPOETIN ALFA [Suspect]
     Route: 058
     Dates: start: 20001128, end: 20010401
  5. EPOETIN ALFA [Suspect]
     Route: 058
     Dates: start: 20011016, end: 20011122
  6. EPOETIN ALFA [Suspect]
     Route: 065
     Dates: start: 20011208
  7. CHLORPROMAZINE HYDROCHLORIDE [Concomitant]
     Route: 048
     Dates: start: 20001107, end: 20001107
  8. CHLORPROMAZINE HYDROCHLORIDE [Concomitant]
     Route: 048
     Dates: start: 20001108, end: 20001108
  9. CHLORPROMAZINE HYDROCHLORIDE [Concomitant]
     Route: 048
     Dates: start: 20001109, end: 20001109
  10. GANCICLOVIR SODIUM [Concomitant]
     Route: 042
     Dates: start: 20001105, end: 20001112

REACTIONS (2)
  - CONVULSION [None]
  - STATUS EPILEPTICUS [None]
